FAERS Safety Report 14182098 (Version 2)
Quarter: 2017Q4

REPORT INFORMATION
  Report Type: Spontaneous
  Country: TR (occurrence: TR)
  Receive Date: 20171113
  Receipt Date: 20171128
  Transmission Date: 20180321
  Serious: Yes (Other)
  Sender: FDA-Public Use
  Company Number: TR-CIPLA LTD.-2017TR19682

PATIENT

DRUGS (5)
  1. ZONISAMIDE. [Suspect]
     Active Substance: ZONISAMIDE
     Dosage: 300 MG, QD
     Route: 065
  2. LEVETIRACETAM. [Suspect]
     Active Substance: LEVETIRACETAM
     Indication: JUVENILE MYOCLONIC EPILEPSY
     Dosage: UNK
     Route: 065
  3. VALPROIC ACID. [Suspect]
     Active Substance: VALPROIC ACID
     Indication: GENERALISED TONIC-CLONIC SEIZURE
     Dosage: 1000 MG/D
     Route: 065
  4. LAMOTRIGINE. [Suspect]
     Active Substance: LAMOTRIGINE
     Indication: GENERALISED TONIC-CLONIC SEIZURE
     Dosage: 200 MG, QD
     Route: 065
  5. ZONISAMIDE. [Suspect]
     Active Substance: ZONISAMIDE
     Indication: JUVENILE MYOCLONIC EPILEPSY
     Dosage: 100 MG/D
     Route: 065

REACTIONS (7)
  - Condition aggravated [Recovering/Resolving]
  - Blood creatinine increased [Recovered/Resolved]
  - Insomnia [Unknown]
  - Drug dose omission [Unknown]
  - Drug ineffective [Unknown]
  - Treatment noncompliance [Unknown]
  - Platelet count decreased [Recovered/Resolved]
